FAERS Safety Report 12650782 (Version 1)
Quarter: 2016Q3

REPORT INFORMATION
  Report Type: Spontaneous
  Country: US (occurrence: US)
  Receive Date: 20160815
  Receipt Date: 20160815
  Transmission Date: 20161109
  Serious: No
  Sender: FDA-Public Use
  Company Number: US-JAZZ-2016-US-004898

PATIENT
  Age: 44 Year
  Sex: Female
  Weight: 65.76 kg

DRUGS (31)
  1. DIAZEPAM. [Concomitant]
     Active Substance: DIAZEPAM
  2. ZOLOFT [Concomitant]
     Active Substance: SERTRALINE HYDROCHLORIDE
  3. ADDERALL [Concomitant]
     Active Substance: AMPHETAMINE ASPARTATE\AMPHETAMINE SULFATE\DEXTROAMPHETAMINE SACCHARATE\DEXTROAMPHETAMINE SULFATE
  4. EFFEXOR [Concomitant]
     Active Substance: VENLAFAXINE HYDROCHLORIDE
  5. PLAQUENIL [Concomitant]
     Active Substance: HYDROXYCHLOROQUINE SULFATE
  6. SALAGEN [Concomitant]
     Active Substance: PILOCARPINE HYDROCHLORIDE
  7. LAMOTRIGINE. [Concomitant]
     Active Substance: LAMOTRIGINE
  8. ESTRADIOL. [Concomitant]
     Active Substance: ESTRADIOL
  9. KLONOPIN [Concomitant]
     Active Substance: CLONAZEPAM
  10. SOMA [Concomitant]
     Active Substance: CARISOPRODOL
  11. XYREM [Suspect]
     Active Substance: SODIUM OXYBATE
     Indication: NARCOLEPSY
     Dosage: 2 G, BID
     Route: 048
     Dates: start: 201009, end: 201010
  12. XYREM [Suspect]
     Active Substance: SODIUM OXYBATE
     Indication: SOMNOLENCE
     Dosage: 3 G, BID
     Route: 048
     Dates: start: 201010, end: 2011
  13. MAXALT [Concomitant]
     Active Substance: RIZATRIPTAN BENZOATE
  14. IMITREX [Concomitant]
     Active Substance: SUMATRIPTAN SUCCINATE
  15. OXYCONTIN [Concomitant]
     Active Substance: OXYCODONE HYDROCHLORIDE
  16. AUGMENTIN [Concomitant]
     Active Substance: AMOXICILLIN\CLAVULANATE POTASSIUM
  17. NEURONTIN [Concomitant]
     Active Substance: GABAPENTIN
  18. METHOTREXATE. [Concomitant]
     Active Substance: METHOTREXATE
  19. PROTONIX [Concomitant]
     Active Substance: PANTOPRAZOLE SODIUM
  20. RITALIN [Concomitant]
     Active Substance: METHYLPHENIDATE HYDROCHLORIDE
  21. SEROQUEL [Concomitant]
     Active Substance: QUETIAPINE FUMARATE
  22. MS CONTIN [Concomitant]
     Active Substance: MORPHINE SULFATE
  23. OXYCODONE HYDROCHLORIDE. [Concomitant]
     Active Substance: OXYCODONE HYDROCHLORIDE
  24. PROVIGIL [Concomitant]
     Active Substance: MODAFINIL
  25. ABILIFY [Concomitant]
     Active Substance: ARIPIPRAZOLE
  26. ACYCLOVIR. [Concomitant]
     Active Substance: ACYCLOVIR
  27. XYREM [Suspect]
     Active Substance: SODIUM OXYBATE
     Dosage: 2.25 G, BID
     Route: 048
     Dates: start: 201210, end: 201210
  28. XYREM [Suspect]
     Active Substance: SODIUM OXYBATE
     Dosage: 3 G, BID
     Route: 048
     Dates: start: 201210
  29. ESCITALOPRAM [Concomitant]
     Active Substance: ESCITALOPRAM OXALATE
  30. NORTRIPTYLINE HCL [Concomitant]
     Active Substance: NORTRIPTYLINE HYDROCHLORIDE
  31. TOPAMAX [Concomitant]
     Active Substance: TOPIRAMATE

REACTIONS (7)
  - Cystitis [Not Recovered/Not Resolved]
  - Cough [Recovering/Resolving]
  - Depression [Recovering/Resolving]
  - Dental operation [Unknown]
  - Malaise [Unknown]
  - Nausea [Unknown]
  - Pain [Unknown]

NARRATIVE: CASE EVENT DATE: 2016
